FAERS Safety Report 5082984-4 (Version None)
Quarter: 2006Q3

REPORT INFORMATION
  Report Type: 
  Country: None (occurrence: None)
  Receive Date: 20060814
  Receipt Date: 20060809
  Transmission Date: 20061208
  Serious: Yes (Life-Threatening, Disabling)
  Sender: FDA-Public Use
  Company Number: 2005S1000841

PATIENT
  Age: 2 Day
  Sex: Female

DRUGS (9)
  1. INOMAX [Suspect]
     Indication: LUNG DISORDER
     Dosage: 5 PPM; INH_GAS; INH; CONT INH
     Route: 055
     Dates: start: 20051015, end: 20051105
  2. INOMAX [Suspect]
     Indication: PROPHYLAXIS
     Dosage: 5 PPM; INH_GAS; INH; CONT INH
     Route: 055
     Dates: start: 20051015, end: 20051105
  3. KONAKION [Concomitant]
  4. AMPICILLIN [Concomitant]
  5. GENTAMICIN [Concomitant]
  6. CUROSURF (CUROSURF) [Concomitant]
  7. RED BLOOD CELLS [Concomitant]
  8. VANCOMYCIN [Concomitant]
  9. NABIC 8.4% [Concomitant]

REACTIONS (6)
  - ANAEMIA NEONATAL [None]
  - DRUG EXPOSURE DURING PREGNANCY [None]
  - INTRAVENTRICULAR HAEMORRHAGE NEONATAL [None]
  - NEONATAL RESPIRATORY DISTRESS SYNDROME [None]
  - PREMATURE BABY [None]
  - SEPSIS NEONATAL [None]
